FAERS Safety Report 20175630 (Version 2)
Quarter: 2022Q1

REPORT INFORMATION
  Report Type: Spontaneous
  Country: ES (occurrence: ES)
  Receive Date: 20211213
  Receipt Date: 20220103
  Transmission Date: 20220423
  Serious: Yes (Hospitalization, Other)
  Sender: FDA-Public Use
  Company Number: ES-NOVARTISPH-NVSC2021ES279580

PATIENT
  Age: 75 Year
  Sex: Female

DRUGS (9)
  1. METHOTREXATE [Suspect]
     Active Substance: METHOTREXATE
     Indication: Product used for unknown indication
     Dosage: UNK
     Route: 065
  2. HYDROCHLOROTHIAZIDE\OLMESARTAN MEDOXOMIL [Suspect]
     Active Substance: HYDROCHLOROTHIAZIDE\OLMESARTAN MEDOXOMIL
     Indication: Hypertension
     Dosage: 1 DOSAGE FORM, QD ((20/12, SC. 24 H), 25 MILLIGRAM/12.5 MILLIGRAM, STARTED 20 DAYS AGO. 1-0-0)
     Route: 065
  3. ASPIRIN [Concomitant]
     Active Substance: ASPIRIN
     Indication: Product used for unknown indication
     Dosage: 100 MG, QD 0-1-0
     Route: 065
  4. BETAMETHASONE [Concomitant]
     Active Substance: BETAMETHASONE
     Indication: Product used for unknown indication
     Dosage: UNK (LIQUID FOR TOPICAL USE, 50 MICROGRAMS/G PLUS 500 MICROGRAMS/G)
     Route: 061
  5. PARIZAC [Concomitant]
     Indication: Product used for unknown indication
     Dosage: 20 MG
     Route: 065
  6. BILASTINE [Concomitant]
     Active Substance: BILASTINE
     Indication: Product used for unknown indication
     Dosage: 20 MG, QD 1-0-0
     Route: 065
  7. ACETAMINOPHEN\TRAMADOL HYDROCHLORIDE [Concomitant]
     Active Substance: ACETAMINOPHEN\TRAMADOL HYDROCHLORIDE
     Indication: Product used for unknown indication
     Dosage: UNK (75 MILLIGRAM/650 MILLIGRAM, HALF ON DEMAND)
     Route: 065
  8. MASTICAL D [Concomitant]
     Indication: Product used for unknown indication
     Dosage: 500 MG, QD (1-0-0)
     Route: 065
  9. PEITEL [Concomitant]
     Indication: Product used for unknown indication
     Dosage: UNK (SOLUTION)
     Route: 061

REACTIONS (27)
  - Hepatotoxicity [Unknown]
  - Acute kidney injury [Recovered/Resolved]
  - Hyperglycaemia [Unknown]
  - Cerebral atrophy [Recovered/Resolved]
  - Blood glucose abnormal [Unknown]
  - Craniocerebral injury [Recovered/Resolved]
  - Skin lesion [Recovered/Resolved]
  - Normochromic anaemia [Unknown]
  - Lacunar infarction [Unknown]
  - Lymphadenopathy mediastinal [Unknown]
  - Fluid intake reduced [Unknown]
  - Cholelithiasis [Unknown]
  - Aortic valve calcification [Unknown]
  - Pulmonary calcification [Unknown]
  - Hiatus hernia [Unknown]
  - Arteriosclerosis coronary artery [Recovered/Resolved]
  - Paradoxical psoriasis [Unknown]
  - Cardiomegaly [Unknown]
  - Tricuspid valve incompetence [Recovered/Resolved]
  - Osteoporosis [Unknown]
  - Choluria [Unknown]
  - Thyroid mass [Unknown]
  - Fall [Recovered/Resolved]
  - Infection [Recovered/Resolved]
  - Pyrexia [Recovered/Resolved]
  - Diarrhoea [Unknown]
  - Hypotension [Unknown]

NARRATIVE: CASE EVENT DATE: 20210318
